FAERS Safety Report 5593997-8 (Version None)
Quarter: 2008Q1

REPORT INFORMATION
  Report Type: 
  Country: None (occurrence: None)
  Receive Date: 20080114
  Receipt Date: 20071207
  Transmission Date: 20080703
  Serious: Yes (Hospitalization)
  Sender: FDA-Public Use
  Company Number: FR-JNJFOC-20071204743

PATIENT
  Sex: Male

DRUGS (1)
  1. DECITABINE (DECITABINE) LYOPHILIZED POWDER [Suspect]
     Indication: MYELODYSPLASTIC SYNDROME
     Dates: start: 20071126, end: 20071130

REACTIONS (3)
  - INJECTION SITE EXTRAVASATION [None]
  - INJECTION SITE NECROSIS [None]
  - THROMBOCYTOPENIA [None]
